FAERS Safety Report 11026903 (Version 2)
Quarter: 2015Q2

REPORT INFORMATION
  Report Type: Spontaneous
  Country: US (occurrence: US)
  Receive Date: 20150414
  Receipt Date: 20150525
  Transmission Date: 20150821
  Serious: No
  Sender: FDA-Public Use
  Company Number: US-JNJFOC-20150115163

PATIENT
  Age: 30 Year
  Sex: Female

DRUGS (1)
  1. MONONESSA [Suspect]
     Active Substance: ETHINYL ESTRADIOL\NORGESTIMATE
     Indication: CONTRACEPTION
     Dosage: 5 MONTHS
     Route: 048

REACTIONS (6)
  - Paraesthesia [Not Recovered/Not Resolved]
  - Headache [Not Recovered/Not Resolved]
  - Polymenorrhoea [Recovered/Resolved]
  - Migraine with aura [Unknown]
  - Hypoaesthesia [Not Recovered/Not Resolved]
  - Muscular weakness [Unknown]

NARRATIVE: CASE EVENT DATE: 20140111
